FAERS Safety Report 10163318 (Version 1)
Quarter: 2014Q2

REPORT INFORMATION
  Report Type: Spontaneous
  Country: BR (occurrence: BR)
  Receive Date: 20140509
  Receipt Date: 20140509
  Transmission Date: 20141212
  Serious: Yes (Hospitalization, Other)
  Sender: FDA-Public Use
  Company Number: PHHY2014BR055537

PATIENT
  Sex: Male
  Weight: 70 kg

DRUGS (4)
  1. DIOVAN AMLO FIX [Suspect]
     Indication: HYPERTENSION
     Dosage: 1 DF,  (VALS 160 MG / AMLO 10 MG), DAILY
     Route: 048
  2. DIOVAN AMLO FIX [Suspect]
     Dosage: 2 DF, (VALS 80 MG / AMLO 5 MG), DAILY
     Route: 048
     Dates: end: 201403
  3. DIOVAN AMLO FIX [Suspect]
     Dosage: 1 DF (VALS 160 MG / AMLO 10 MG), DAILY
     Route: 048
  4. RIVOTRIL [Concomitant]
     Indication: SLEEP DISORDER
     Dosage: 0.5 DF, QD  (HALF TABLET), QD (AT NIGHT)
     Route: 048

REACTIONS (11)
  - Calculus bladder [Recovered/Resolved]
  - Bladder pain [Recovered/Resolved]
  - Dysuria [Recovered/Resolved]
  - Abdominal pain [Recovered/Resolved]
  - Prostate cancer [Recovered/Resolved]
  - Prostatomegaly [Recovered/Resolved]
  - Escherichia infection [Unknown]
  - Proctalgia [Recovered/Resolved]
  - Urinary tract infection [Unknown]
  - Blood pressure decreased [Recovered/Resolved]
  - Insomnia [Recovered/Resolved]
